FAERS Safety Report 4482282-3 (Version None)
Quarter: 2004Q4

REPORT INFORMATION
  Report Type: 
  Country: None (occurrence: None)
  Receive Date: 20041020
  Receipt Date: 20041006
  Transmission Date: 20050328
  Serious: Yes (Hospitalization)
  Sender: FDA-Public Use
  Company Number: 2004AP02908

PATIENT
  Age: 64 Year
  Sex: Female

DRUGS (10)
  1. ARIMIDEX [Suspect]
     Indication: BREAST CANCER
     Dosage: 1 MG DAILY PO
     Route: 048
     Dates: start: 20030508, end: 20031031
  2. ARIMIDEX [Suspect]
     Indication: BREAST CANCER
     Dosage: 1 MG DAILY PO
     Route: 048
     Dates: start: 20031211, end: 20031215
  3. PANCREATIN [Concomitant]
  4. ALBUMIN TANNATE [Concomitant]
  5. ACINON [Concomitant]
  6. MUCOSTA [Concomitant]
  7. URSO [Concomitant]
  8. FARESTON ^LAAKEFARMOS^ [Concomitant]
  9. LASIX /SCH/ [Concomitant]
  10. LAC B [Concomitant]

REACTIONS (1)
  - PANCREATITIS ACUTE [None]
